FAERS Safety Report 5235919-5 (Version None)
Quarter: 2007Q1

REPORT INFORMATION
  Report Type: 
  Country: None (occurrence: None)
  Receive Date: 20061208
  Receipt Date: 20060421
  Transmission Date: 20070707
  Serious: Yes (Other)
  Sender: FDA-Public Use
  Company Number: 2006UW07157

PATIENT
  Age: 59 Year
  Sex: Male
  Weight: 73.481 kg

DRUGS (2)
  1. CRESTOR [Suspect]
     Dosage: 10 MG QD PO
     Route: 048
     Dates: start: 20060406, end: 20060418
  2. BENICAR [Suspect]
     Dates: end: 20060418

REACTIONS (3)
  - DRY MOUTH [None]
  - DYSPHAGIA [None]
  - SWOLLEN TONGUE [None]
